FAERS Safety Report 20692571 (Version 1)
Quarter: 2022Q2

REPORT INFORMATION
  Report Type: Spontaneous
  Country: US (occurrence: None)
  Receive Date: 20220407
  Receipt Date: 20220407
  Transmission Date: 20220721
  Serious: Yes (Hospitalization)
  Sender: FDA-Public Use
  Company Number: None

PATIENT
  Sex: Female
  Weight: 62.14 kg

DRUGS (5)
  1. TEMOZOLOMIDE [Suspect]
     Active Substance: TEMOZOLOMIDE
     Indication: Bone neoplasm
     Dosage: OTHER FREQUENCY : DAILYFOR7DAYS;?
     Route: 048
     Dates: start: 202202, end: 202204
  2. FLUOXETINE [Concomitant]
  3. GABAPENTIN [Concomitant]
  4. BETHAMETHASON VALERATE EXTERNAL [Concomitant]
  5. ZOFRAN [Concomitant]
     Active Substance: ONDANSETRON HYDROCHLORIDE

REACTIONS (3)
  - Constipation [None]
  - Urinary tract infection [None]
  - Suicide attempt [None]
